FAERS Safety Report 4907314-7 (Version None)
Quarter: 2006Q1

REPORT INFORMATION
  Report Type: 
  Country: None (occurrence: None)
  Receive Date: 20060208
  Receipt Date: 20060208
  Transmission Date: 20060701
  Serious: Yes (Hospitalization)
  Sender: FDA-Public Use
  Company Number: None

PATIENT
  Age: 84 Year
  Sex: Male

DRUGS (4)
  1. CARVEDILOL [Suspect]
     Indication: CARDIAC FAILURE CONGESTIVE
  2. ETODOLAC [Concomitant]
  3. DILTIAZEM HCL [Concomitant]
  4. FOSINOPRIL SODIUM [Concomitant]

REACTIONS (1)
  - HYPOTENSION [None]
